FAERS Safety Report 11712036 (Version 1)
Quarter: 2015Q4

REPORT INFORMATION
  Report Type: Spontaneous
  Country: US (occurrence: US)
  Receive Date: 20151104
  Receipt Date: 20151104
  Transmission Date: 20160304
  Serious: No
  Sender: FDA-Public Use
  Company Number: US-ELI_LILLY_AND_COMPANY-US201106007740

PATIENT
  Age: 70 Year
  Sex: Female
  Weight: 37.64 kg

DRUGS (1)
  1. FORTEO [Suspect]
     Active Substance: TERIPARATIDE
     Indication: OSTEOPOROSIS
     Dosage: 20 UG, QD
     Dates: start: 201005

REACTIONS (6)
  - Asthenia [Not Recovered/Not Resolved]
  - Colonoscopy [Unknown]
  - Sleep apnoea syndrome [Unknown]
  - Gastrointestinal malformation [Unknown]
  - Weight decreased [Recovering/Resolving]
  - Injection site mass [Recovered/Resolved]

NARRATIVE: CASE EVENT DATE: 201009
